FAERS Safety Report 5800534-9 (Version None)
Quarter: 2008Q3

REPORT INFORMATION
  Report Type: 
  Country: None (occurrence: None)
  Receive Date: 20080701
  Receipt Date: 20080616
  Transmission Date: 20090109
  Serious: Yes (Disabling)
  Sender: FDA-Public Use
  Company Number: 2008AL007000

PATIENT
  Sex: Female

DRUGS (1)
  1. DIGOXIN [Suspect]
     Dosage: 0.125 MG

REACTIONS (6)
  - ABASIA [None]
  - DIZZINESS [None]
  - HYPERTENSION [None]
  - MONOPLEGIA [None]
  - NAUSEA [None]
  - VERTIGO [None]
